FAERS Safety Report 7048886-9 (Version None)
Quarter: 2010Q4

REPORT INFORMATION
  Report Type: 
  Country: None (occurrence: None)
  Receive Date: 20101018
  Receipt Date: 20101005
  Transmission Date: 20110411
  Serious: Yes (Other)
  Sender: FDA-Public Use
  Company Number: FR-ELI_LILLY_AND_COMPANY-FR201010003618

PATIENT
  Age: 60 Year
  Sex: Female

DRUGS (1)
  1. OPTRUMA [Suspect]
     Indication: OSTEOPOROSIS

REACTIONS (1)
  - BREAST CANCER [None]
